FAERS Safety Report 6984337-8 (Version None)
Quarter: 2010Q3

REPORT INFORMATION
  Report Type: 
  Country: None (occurrence: None)
  Receive Date: 20100915
  Receipt Date: 20100903
  Transmission Date: 20110219
  Serious: Yes (Hospitalization)
  Sender: FDA-Public Use
  Company Number: PHHY2010FR58619

PATIENT
  Age: 61 Year
  Sex: Male

DRUGS (5)
  1. ESIDRIX [Suspect]
     Indication: HYPERTENSION
     Dosage: HALF A TABLET DAILY
     Route: 048
     Dates: end: 20100416
  2. ESIDRIX [Suspect]
     Dosage: 1 TABLET DAILY
     Dates: start: 20100417, end: 20100511
  3. ESIDRIX [Suspect]
     Dosage: HALF A TABLET DAILY
     Dates: start: 20100512
  4. IRBESARTAN [Concomitant]
     Indication: HYPERTENSION
     Dosage: 50 MG, UNK
  5. SOTALOL [Concomitant]
     Indication: HYPERTENSION

REACTIONS (2)
  - DIZZINESS POSTURAL [None]
  - ORTHOSTATIC HYPOTENSION [None]
